FAERS Safety Report 7661368-6 (Version None)
Quarter: 2011Q3

REPORT INFORMATION
  Report Type: 
  Country: None (occurrence: None)
  Receive Date: 20110805
  Receipt Date: 20100923
  Transmission Date: 20111222
  Serious: No
  Sender: FDA-Public Use
  Company Number: US-ABBOTT-10P-163-0673564-00

PATIENT
  Sex: Male
  Weight: 136.2 kg

DRUGS (9)
  1. ATACAND [Concomitant]
     Indication: HYPERTENSION
  2. TRICOR [Concomitant]
     Indication: BLOOD CHOLESTEROL INCREASED
  3. HYDROCHLOROTHIAZIDE [Concomitant]
     Indication: PRODUCT USED FOR UNKNOWN INDICATION
     Dosage: UNKNOWN
  4. METFORMIN HCL [Concomitant]
     Indication: DIABETES MELLITUS
  5. NIASPAN [Suspect]
     Indication: BLOOD CHOLESTEROL INCREASED
     Dates: start: 20070101
  6. NIASPAN [Suspect]
     Dosage: AT NIGHT
     Dates: end: 20090101
  7. ACTOS [Concomitant]
     Indication: DIABETES MELLITUS
  8. GLIMEPIRIDE [Concomitant]
     Indication: DIABETES MELLITUS
  9. ATENOLOL [Concomitant]
     Indication: HYPERTENSION

REACTIONS (3)
  - LOSS OF CONSCIOUSNESS [None]
  - HOT FLUSH [None]
  - DRUG INEFFECTIVE [None]
